FAERS Safety Report 23945045 (Version 2)
Quarter: 2024Q2

REPORT INFORMATION
  Report Type: Spontaneous
  Country: RO (occurrence: RO)
  Receive Date: 20240606
  Receipt Date: 20240620
  Transmission Date: 20240716
  Serious: Yes (Other)
  Sender: FDA-Public Use
  Company Number: RO-TAKEDA-2024TUS056321

PATIENT
  Age: 32 Year
  Sex: Male

DRUGS (8)
  1. ENTYVIO [Suspect]
     Active Substance: VEDOLIZUMAB
     Indication: Colitis ulcerative
     Dosage: 300 MILLIGRAM, MONTHLY
     Route: 065
     Dates: start: 202206, end: 202303
  2. MESALAMINE [Suspect]
     Active Substance: MESALAMINE
     Indication: Colitis ulcerative
     Dosage: 3 GRAM, QD
     Route: 048
     Dates: start: 2017, end: 202206
  3. MESALAMINE [Suspect]
     Active Substance: MESALAMINE
     Dosage: 1 GRAM, QD
     Route: 054
     Dates: start: 2017, end: 202206
  4. BUDESONIDE [Suspect]
     Active Substance: BUDESONIDE
     Indication: Colitis ulcerative
     Dosage: 1 DOSAGE FORM, QD
     Route: 048
     Dates: start: 202212, end: 202303
  5. Cortiment [Concomitant]
     Dosage: 9 MILLIGRAM, QD
     Dates: start: 202212
  6. TOFACITINIB [Concomitant]
     Active Substance: TOFACITINIB
     Dosage: 10 MILLIGRAM, BID
     Dates: start: 202303
  7. TOFACITINIB [Concomitant]
     Active Substance: TOFACITINIB
     Dosage: 10 MILLIGRAM, BID
     Dates: start: 202305
  8. TOFACITINIB [Concomitant]
     Active Substance: TOFACITINIB
     Dosage: 5 MILLIGRAM, BID
     Dates: start: 202308

REACTIONS (4)
  - Colitis ulcerative [Unknown]
  - Iron deficiency anaemia [Unknown]
  - Weight decreased [Unknown]
  - Therapy non-responder [Unknown]
